FAERS Safety Report 7032063-1 (Version None)
Quarter: 2010Q4

REPORT INFORMATION
  Report Type: 
  Country: None (occurrence: None)
  Receive Date: 20101007
  Receipt Date: 20100924
  Transmission Date: 20110411
  Serious: Yes (Hospitalization, Other)
  Sender: FDA-Public Use
  Company Number: US-ELI_LILLY_AND_COMPANY-US201008005240

PATIENT
  Sex: Female
  Weight: 68.027 kg

DRUGS (11)
  1. EFFIENT [Suspect]
     Indication: ANGIOPLASTY
     Dosage: 10 MG, DAILY (1/D)
     Dates: start: 20100301
  2. COMBIVENT [Concomitant]
  3. POTASSIUM [Concomitant]
  4. GABAPENTIN [Concomitant]
  5. COLACE [Concomitant]
  6. ZOCOR [Concomitant]
  7. ALPRAZOLAM [Concomitant]
  8. METOPROLOL TARTRATE [Concomitant]
  9. ASPIRIN [Concomitant]
  10. VICODIN [Concomitant]
     Dosage: 1 D/F, AS NEEDED
  11. LASIX [Concomitant]

REACTIONS (4)
  - CEREBELLAR INFARCTION [None]
  - DEPRESSION [None]
  - MENTAL IMPAIRMENT [None]
  - VISION BLURRED [None]
